FAERS Safety Report 19884149 (Version 1)
Quarter: 2021Q3

REPORT INFORMATION
  Report Type: Spontaneous
  Country: US (occurrence: US)
  Receive Date: 20210927
  Receipt Date: 20210927
  Transmission Date: 20211014
  Serious: Yes (Hospitalization, Other)
  Sender: FDA-Public Use
  Company Number: US-AUROBINDO-AUR-APL-2021-039534

PATIENT
  Age: 32 Year
  Sex: Male

DRUGS (4)
  1. DOXORUBICIN [Suspect]
     Active Substance: DOXORUBICIN
     Indication: BLASTIC PLASMACYTOID DENDRITIC CELL NEOPLASIA
     Dosage: 50 MILLIGRAM/SQ. METER, CYCLICAL
     Route: 042
  2. PREDNISONE. [Suspect]
     Active Substance: PREDNISONE
     Indication: BLASTIC PLASMACYTOID DENDRITIC CELL NEOPLASIA
     Dosage: 500 MILLIGRAM, CYCLICAL (100 MG ORALLY DAILY FOR 5 DAYS)
     Route: 048
  3. VINCRISTIN [Suspect]
     Active Substance: VINCRISTINE
     Indication: BLASTIC PLASMACYTOID DENDRITIC CELL NEOPLASIA
     Dosage: 1.4 MILLIGRAM/SQ. METER, CYCLICAL (CAPPED AT 2 MG )
     Route: 042
  4. CYCLOPHOSPHAMIDE. [Suspect]
     Active Substance: CYCLOPHOSPHAMIDE
     Indication: BLASTIC PLASMACYTOID DENDRITIC CELL NEOPLASIA
     Dosage: 750 MILLIGRAM/SQ. METER, CYCLICAL
     Route: 042

REACTIONS (6)
  - Tumour lysis syndrome [Unknown]
  - Blindness [Unknown]
  - Retinal haemorrhage [Unknown]
  - Disseminated intravascular coagulation [Unknown]
  - Macular oedema [Unknown]
  - Retinal exudates [Unknown]
